FAERS Safety Report 25773644 (Version 2)
Quarter: 2025Q4

REPORT INFORMATION
  Report Type: Spontaneous
  Country: JP (occurrence: JP)
  Receive Date: 20250908
  Receipt Date: 20251006
  Transmission Date: 20260119
  Serious: Yes (Other)
  Sender: BRISTOL-MYERS SQUIBB COMPANY
  Company Number: JP-TAIHO-2025-008349

PATIENT
  Age: 8 Decade
  Sex: Female

DRUGS (2)
  1. ABRAXANE [Suspect]
     Active Substance: PACLITAXEL
     Indication: Non-small cell lung cancer
     Dosage: 140 MG/DAY, DETAILS NOT REPORTED, 4 CYCLES?DAILY DOSE: 140 MILLIGRAM(S)
     Dates: start: 20250512, end: 20250818
  2. CARBOPLATIN [Suspect]
     Active Substance: CARBOPLATIN
     Indication: Non-small cell lung cancer
     Dosage: 330 MG/DAY, DETAILS NOT REPORTED, 4 CYCLES?DAILY DOSE: 330 MILLIGRAM(S)
     Dates: start: 20250512, end: 20250818

REACTIONS (2)
  - Melaena [Recovered/Resolved]
  - Anaemia [Recovered/Resolved]

NARRATIVE: CASE EVENT DATE: 20250616
